FAERS Safety Report 8400277-1 (Version None)
Quarter: 2012Q2

REPORT INFORMATION
  Report Type: 
  Country: None (occurrence: None)
  Receive Date: 20120531
  Receipt Date: 20120528
  Transmission Date: 20120825
  Serious: Yes (Other)
  Sender: FDA-Public Use
  Company Number: IT-GILEAD-2012-0055640

PATIENT
  Sex: Female

DRUGS (7)
  1. LEVOPRAID                          /00314301/ [Concomitant]
  2. DIBASE [Concomitant]
  3. VIREAD [Suspect]
     Indication: HIV INFECTION
     Dosage: 300 MG, QD
     Route: 048
     Dates: start: 20030304, end: 20120127
  4. ESCITALOPRAM [Concomitant]
  5. LORAZEPAM [Concomitant]
  6. REYATAZ [Suspect]
     Indication: HIV INFECTION
     Dosage: 300 MG, QD
     Route: 048
     Dates: start: 20090409, end: 20120127
  7. EPIVIR [Suspect]
     Indication: HIV INFECTION
     Dosage: 300 MG, QD
     Route: 048
     Dates: start: 20020403, end: 20120127

REACTIONS (1)
  - RENAL FUNCTION TEST ABNORMAL [None]
